FAERS Safety Report 8542343-6 (Version None)
Quarter: 2012Q3

REPORT INFORMATION
  Report Type: 
  Country: None (occurrence: None)
  Receive Date: 20120726
  Receipt Date: 20110822
  Transmission Date: 20120928
  Serious: Yes (Hospitalization)
  Sender: FDA-Public Use
  Company Number: US-ASTRAZENECA-2011SE50526

PATIENT
  Age: 20 Year
  Sex: Male
  Weight: 65.8 kg

DRUGS (1)
  1. SEROQUEL XR [Suspect]
     Route: 048
     Dates: start: 20101101

REACTIONS (8)
  - SUICIDAL IDEATION [None]
  - INSOMNIA [None]
  - TREATMENT NONCOMPLIANCE [None]
  - HALLUCINATION [None]
  - DRUG DOSE OMISSION [None]
  - FEELING ABNORMAL [None]
  - PARANOIA [None]
  - PAIN IN EXTREMITY [None]
